FAERS Safety Report 6691554-3 (Version None)
Quarter: 2010Q2

REPORT INFORMATION
  Report Type: 
  Country: None (occurrence: None)
  Receive Date: 20100422
  Receipt Date: 20100415
  Transmission Date: 20101027
  Serious: Yes (Life-Threatening)
  Sender: FDA-Public Use
  Company Number: IT-TEVA-230973ISR

PATIENT
  Sex: Female

DRUGS (1)
  1. CARBOPLATIN [Suspect]
     Indication: LUNG ADENOCARCINOMA
     Route: 042
     Dates: start: 20100413, end: 20100413

REACTIONS (3)
  - ALTERED STATE OF CONSCIOUSNESS [None]
  - BRONCHOSPASM [None]
  - CARDIAC ARREST [None]
